FAERS Safety Report 17658150 (Version 2)
Quarter: 2021Q2

REPORT INFORMATION
  Report Type: Spontaneous
  Country: US (occurrence: US)
  Receive Date: 20200411
  Receipt Date: 20210623
  Transmission Date: 20210716
  Serious: Yes (Other)
  Sender: FDA-Public Use
  Company Number: US-TEVA-2020-US-1221313

PATIENT
  Age: 65 Year
  Sex: Male
  Weight: 65.7 kg

DRUGS (8)
  1. VALSARTAN/HYDROCHLOROTHIAZIDE HUAHAI/ SOLCO [Suspect]
     Active Substance: HYDROCHLOROTHIAZIDE\VALSARTAN
     Dosage: 1 DOSAGE FORMS DAILY; VALSARTAN 160 MG/ HYDROCHLOROTHIAZIDE 12.5 MG
     Route: 048
     Dates: start: 20170626, end: 20170924
  2. VALSARTAN/HYDROCHLOROTHIAZIDE HUAHAI/ SOLCO [Suspect]
     Active Substance: HYDROCHLOROTHIAZIDE\VALSARTAN
     Dosage: 1 DOSAGE FORMS DAILY; VALSARTAN 160 MG/ HYDROCHLOROTHIAZIDE 12.5 MG
     Route: 048
     Dates: start: 20161114, end: 20170212
  3. VALSARTAN/HYDROCHLOROTHIAZIDE ACETRIS/ AURBINDO [Suspect]
     Active Substance: HYDROCHLOROTHIAZIDE\VALSARTAN
     Indication: HYPERTENSION
     Dosage: 1 DOSAGE FORMS DAILY; VALSARTAN 160 MG/ HYDROCHLOROTHIAZIDE 12.5 MG
     Route: 048
     Dates: start: 20131006, end: 20131105
  4. VALSARTAN/HYDROCHLOROTHIAZIDE HUAHAI/ SOLCO [Suspect]
     Active Substance: HYDROCHLOROTHIAZIDE\VALSARTAN
     Indication: HYPERTENSION
     Dosage: 1 DOSAGE FORMS DAILY; VALSARTAN 160 MG/ HYDROCHLOROTHIAZIDE 12.5 MG
     Route: 048
     Dates: start: 20160714, end: 20161012
  5. DIOVAN HCT [Suspect]
     Active Substance: HYDROCHLOROTHIAZIDE\VALSARTAN
     Indication: HYPERTENSION
     Dosage: 1 DOSAGE FORMS DAILY; VALSARTAN 160 MG/ HYDROCHLOROTHIAZIDE 12.5 MG
     Route: 048
     Dates: start: 200007, end: 200509
  6. VALSARTAN/HYDROCHLOROTHIAZIDE ACETRIS/ AURBINDO [Suspect]
     Active Substance: HYDROCHLOROTHIAZIDE\VALSARTAN
     Dosage: 1 DOSAGE FORMS DAILY; VALSARTAN 160 MG/ HYDROCHLOROTHIAZIDE 12.5 MG
     Route: 048
     Dates: start: 20150709, end: 20151007
  7. VALSARTAN/HYDROCHLOROTHIAZIDE HUAHAI/ SOLCO [Suspect]
     Active Substance: HYDROCHLOROTHIAZIDE\VALSARTAN
     Dosage: 1 DOSAGE FORMS DAILY; VALSARTAN 160 MG/ HYDROCHLOROTHIAZIDE 12.5 MG
     Route: 048
     Dates: start: 20170307, end: 20170605
  8. VALSARTAN/HYDROCHLOROTHIAZIDE HUAHAI/ SOLCO [Suspect]
     Active Substance: HYDROCHLOROTHIAZIDE\VALSARTAN
     Dosage: 1 DOSAGE FORMS DAILY; VALSARTAN 160 MG/ HYDROCHLOROTHIAZIDE 12.5 MG
     Route: 048
     Dates: start: 20171025, end: 20180123

REACTIONS (2)
  - Colon cancer stage III [Recovering/Resolving]
  - Neuropathy peripheral [Not Recovered/Not Resolved]
